FAERS Safety Report 4786281-3 (Version None)
Quarter: 2005Q3

REPORT INFORMATION
  Report Type: 
  Country: None (occurrence: None)
  Receive Date: 20050914
  Receipt Date: 20050302
  Transmission Date: 20060218
  Serious: Yes (Other)
  Sender: FDA-Public Use
  Company Number: 163-20785-05030039

PATIENT
  Age: 55 Year
  Sex: Male

DRUGS (4)
  1. THALOMID [Suspect]
     Indication: MULTIPLE MYELOMA
     Dosage: 50 MG, DAILY X 5 DAYS, ORAL; 100 MG, DAILY X 5 DAYS, ORAL; 150 MG, DAILY X 5 DAYS, ORAL; 50 MG, DAIL
     Route: 048
     Dates: start: 20050114
  2. THALOMID [Suspect]
     Indication: MULTIPLE MYELOMA
     Dosage: 50 MG, DAILY X 5 DAYS, ORAL; 100 MG, DAILY X 5 DAYS, ORAL; 150 MG, DAILY X 5 DAYS, ORAL; 50 MG, DAIL
     Route: 048
     Dates: start: 20050309
  3. DEXAMETHASONE [Suspect]
     Indication: MULTIPLE MYELOMA
     Dosage: 40MG, ON DAYS 1-4, 9-12 AND 17-20 OF TREATMENT CYCLE, ORAL
     Route: 048
  4. COUMADIN [Concomitant]

REACTIONS (1)
  - DEEP VEIN THROMBOSIS [None]
